FAERS Safety Report 4634883-7 (Version None)
Quarter: 2005Q2

REPORT INFORMATION
  Report Type: 
  Country: None (occurrence: None)
  Receive Date: 20050412
  Receipt Date: 20050329
  Transmission Date: 20051028
  Serious: Yes (Hospitalization)
  Sender: FDA-Public Use
  Company Number: 2005SE01249

PATIENT
  Age: 67 Year
  Sex: Male

DRUGS (20)
  1. ROSUVASTATIN [Suspect]
     Indication: RENAL FAILURE CHRONIC
     Dosage: 10 MG DAILY PO
     Route: 048
     Dates: start: 20040505, end: 20041107
  2. FUROSEMIDE [Suspect]
     Indication: FLUID RETENTION
     Dosage: 500 MG
     Dates: end: 20041108
  3. AMINESS [Concomitant]
  4. ORALOVITE [Concomitant]
  5. FOLACIN [Concomitant]
  6. ENALAPRIL MALEATE [Concomitant]
  7. ASPIRIN [Concomitant]
  8. PERSANTIN [Concomitant]
  9. FUROSEMIDE [Concomitant]
  10. PLENDIL [Concomitant]
  11. ETALPHA [Concomitant]
  12. EMLA [Concomitant]
  13. RENAGEL [Concomitant]
  14. RESONIUM [Concomitant]
  15. VOLTAREN [Concomitant]
  16. VENOFER [Concomitant]
  17. INNOHEP [Concomitant]
  18. ARANESP [Concomitant]
  19. IMOVANE [Concomitant]
  20. LACTULOS [Concomitant]

REACTIONS (1)
  - CUTANEOUS LUPUS ERYTHEMATOSUS [None]
